FAERS Safety Report 13566802 (Version 2)
Quarter: 2018Q3

REPORT INFORMATION
  Report Type: Spontaneous
  Country: SE (occurrence: SE)
  Receive Date: 20170522
  Receipt Date: 20180828
  Transmission Date: 20181010
  Serious: Yes (Hospitalization, Disabling, Other)
  Sender: FDA-Public Use
  Company Number: SE-SHIRE-SE201710324

PATIENT
  Age: 65 Year
  Sex: Male

DRUGS (3)
  1. LYRICA [Concomitant]
     Active Substance: PREGABALIN
     Indication: PRODUCT USED FOR UNKNOWN INDICATION
     Dosage: UNK, UNKNOWN
     Route: 065
  2. ELVANSE [Suspect]
     Active Substance: LISDEXAMFETAMINE DIMESYLATE
     Indication: ATTENTION DEFICIT/HYPERACTIVITY DISORDER
     Dosage: 140 MG, 1X/DAY:QD (2 MORNINGS)
     Route: 048
     Dates: start: 2014
  3. METHADONE [Concomitant]
     Active Substance: METHADONE HYDROCHLORIDE
     Indication: PRODUCT USED FOR UNKNOWN INDICATION
     Dosage: UNK, UNKNOWN
     Route: 065

REACTIONS (2)
  - Cerebral infarction [Recovered/Resolved with Sequelae]
  - Prescribed overdose [Not Recovered/Not Resolved]

NARRATIVE: CASE EVENT DATE: 2014
